FAERS Safety Report 16691946 (Version 1)
Quarter: 2019Q3

REPORT INFORMATION
  Report Type: Spontaneous
  Country: VN (occurrence: VN)
  Receive Date: 20190812
  Receipt Date: 20190812
  Transmission Date: 20191004
  Serious: Yes (Death, Other)
  Sender: FDA-Public Use
  Company Number: VN-TEVA-2019-VN-1084419

PATIENT
  Age: 66 Year
  Sex: Male

DRUGS (5)
  1. CARBOPLATIN SINDAN [Suspect]
     Active Substance: CARBOPLATIN
     Route: 042
     Dates: start: 2018, end: 2018
  2. PEMETREXED. [Concomitant]
     Active Substance: PEMETREXED
  3. CARBOPLATIN SINDAN [Suspect]
     Active Substance: CARBOPLATIN
     Indication: LUNG NEOPLASM MALIGNANT
     Dosage: 150MG/15ML
     Route: 042
  4. DEXAMETHASON 8 MG [Concomitant]
  5. ODANSETRON 4 MG [Concomitant]

REACTIONS (5)
  - Death [Fatal]
  - Cardiac arrest [Unknown]
  - Somnolence [Unknown]
  - Hypotension [Unknown]
  - Anaphylactic reaction [Unknown]

NARRATIVE: CASE EVENT DATE: 20190710
